FAERS Safety Report 7306803-8 (Version None)
Quarter: 2011Q1

REPORT INFORMATION
  Report Type: 
  Country: None (occurrence: None)
  Receive Date: 20110223
  Receipt Date: 20110218
  Transmission Date: 20110831
  Serious: Yes (Other)
  Sender: FDA-Public Use
  Company Number: US-ASTRAZENECA-2007UW21657

PATIENT
  Age: 550 Month
  Sex: Female

DRUGS (31)
  1. SEROQUEL [Suspect]
     Dosage: 200 MG - 100 MG
     Route: 048
     Dates: start: 20020201, end: 20070401
  2. GEODON [Concomitant]
     Dates: start: 20061128
  3. RISPERDAL [Concomitant]
     Indication: DEPRESSION
     Dates: start: 20010712
  4. SEROQUEL [Suspect]
     Indication: DEPRESSION
     Dosage: 100-700 MG
     Route: 048
     Dates: start: 20020226, end: 20050101
  5. SEROQUEL [Suspect]
     Dosage: 200 MG - 100 MG
     Route: 048
     Dates: start: 20020201, end: 20070401
  6. SYNTHROID [Concomitant]
     Dates: start: 20060216
  7. SEROQUEL [Suspect]
     Dosage: 50 TO 400 MG
     Route: 048
     Dates: start: 20020802
  8. SEROQUEL [Suspect]
     Dosage: 100 TO 400 MG
     Route: 048
     Dates: start: 20031126
  9. SEROQUEL [Suspect]
     Indication: SCHIZOPHRENIA
     Dosage: 100-700 MG
     Route: 048
     Dates: start: 20020226, end: 20050101
  10. SEROQUEL [Suspect]
     Dosage: 100 TO 400 MG
     Route: 048
     Dates: start: 20031126
  11. SEROQUEL [Suspect]
     Dosage: 100 TO 400 MG
     Route: 048
     Dates: start: 20031126
  12. RISPERDAL [Concomitant]
     Indication: SCHIZOPHRENIA
     Dates: start: 20010712
  13. SEROQUEL [Suspect]
     Dosage: 200 MG - 100 MG
     Route: 048
     Dates: start: 20020201, end: 20070401
  14. SEROQUEL [Suspect]
     Dosage: 50 TO 400 MG
     Route: 048
     Dates: start: 20020802
  15. PROZAC [Concomitant]
     Dates: start: 20031126
  16. NEXIUM [Concomitant]
     Dates: start: 20060216
  17. SEROQUEL [Suspect]
     Dosage: 200 MG - 100 MG
     Route: 048
     Dates: start: 20020201, end: 20070401
  18. SEROQUEL [Suspect]
     Dosage: 50 TO 400 MG
     Route: 048
     Dates: start: 20020802
  19. SEROQUEL [Suspect]
     Dosage: 50 TO 400 MG
     Route: 048
     Dates: start: 20020802
  20. SEROQUEL [Suspect]
     Dosage: 100 TO 400 MG
     Route: 048
     Dates: start: 20031126
  21. SEROQUEL [Suspect]
     Dosage: 100 TO 400 MG
     Route: 048
     Dates: start: 20031126
  22. LIPITOR [Concomitant]
     Dates: start: 20060216
  23. ABILIFY [Concomitant]
     Dates: start: 20070828
  24. SEROQUEL [Suspect]
     Indication: ANXIETY
     Dosage: 100-700 MG
     Route: 048
     Dates: start: 20020226, end: 20050101
  25. PROZAC [Concomitant]
     Dates: start: 20061128
  26. ZETIA [Concomitant]
     Dates: start: 20060216
  27. SEROQUEL [Suspect]
     Indication: BIPOLAR DISORDER
     Dosage: 100-700 MG
     Route: 048
     Dates: start: 20020226, end: 20050101
  28. SEROQUEL [Suspect]
     Indication: SLEEP DISORDER
     Dosage: 100-700 MG
     Route: 048
     Dates: start: 20020226, end: 20050101
  29. SEROQUEL [Suspect]
     Dosage: 200 MG - 100 MG
     Route: 048
     Dates: start: 20020201, end: 20070401
  30. SEROQUEL [Suspect]
     Dosage: 50 TO 400 MG
     Route: 048
     Dates: start: 20020802
  31. RISPERDAL [Concomitant]
     Indication: BIPOLAR DISORDER
     Dates: start: 20010712

REACTIONS (8)
  - PANCREATITIS [None]
  - TYPE 2 DIABETES MELLITUS [None]
  - BLOOD CHOLESTEROL INCREASED [None]
  - BLOOD TRIGLYCERIDES INCREASED [None]
  - DIABETIC KETOACIDOSIS [None]
  - CHOLELITHIASIS [None]
  - DIABETIC COMPLICATION [None]
  - HYPERLIPIDAEMIA [None]
